FAERS Safety Report 4692215-2 (Version None)
Quarter: 2005Q2

REPORT INFORMATION
  Report Type: 
  Country: None (occurrence: None)
  Receive Date: 20050614
  Receipt Date: 20050527
  Transmission Date: 20051028
  Serious: Yes (Hospitalization)
  Sender: FDA-Public Use
  Company Number: RENA-11391

PATIENT
  Age: 70 Year
  Sex: Male
  Weight: 69.5 kg

DRUGS (14)
  1. RENAGEL [Suspect]
     Indication: HYPERPHOSPHATAEMIA
     Dosage: 0.5 G TID PO
     Route: 048
     Dates: start: 20040907, end: 20041027
  2. RENAGEL [Suspect]
     Indication: HYPERPHOSPHATAEMIA
     Dosage: 0.25 G TID PO
     Route: 048
     Dates: start: 20041028
  3. HUMAN RED BLOOD CELLS [Concomitant]
  4. CALCIUM CARBONATE [Concomitant]
  5. PERSENNID DATES [Concomitant]
  6. ALOSENN [Concomitant]
  7. ROHYPNOL [Concomitant]
  8. ZYLORIC [Concomitant]
  9. PANALDINE [Concomitant]
  10. BUFFERIN [Concomitant]
  11. LIPOVAS [Concomitant]
  12. RISUMIC [Concomitant]
  13. INDERAL [Concomitant]
  14. GASCON [Concomitant]

REACTIONS (2)
  - ANAEMIA [None]
  - SMALL INTESTINAL HAEMORRHAGE [None]
